FAERS Safety Report 8211842-9 (Version None)
Quarter: 2012Q1

REPORT INFORMATION
  Report Type: 
  Country: None (occurrence: None)
  Receive Date: 20120315
  Receipt Date: 20120308
  Transmission Date: 20120608
  Serious: Yes (Other)
  Sender: FDA-Public Use
  Company Number: HR-B.I. PHARMACEUTICALS,INC./RIDGEFIELD-2012-AP-00203AP

PATIENT
  Age: 52 Year
  Sex: Female

DRUGS (7)
  1. HELEX (ALPRAZOLAM) [Concomitant]
     Indication: DEPRESSION
     Dosage: 0.5 MG
  2. DIAZEPAM ALKALOID (DIAZEPAM) [Concomitant]
     Indication: DEPRESSION
     Dosage: 10 MG
  3. MELOXICAM [Suspect]
     Indication: PAIN IN EXTREMITY
     Dosage: 30 MG
     Route: 048
     Dates: start: 20120105
  4. LORISTA (LOSARTAN POTASSIUM) [Concomitant]
     Indication: HYPERTENSION
     Dosage: 50 MG
  5. ISMN GENERICON (ISOSORBIDE MONONITRATE) [Concomitant]
     Indication: ANGINA PECTORIS
     Dosage: 20 MG
  6. ZALDIAR (PARACETAMOL/TRAMADOL HYDROCHLORIDE) [Concomitant]
     Indication: RHEUMATOID ARTHRITIS
     Dosage: 325MG/37.5MG/AS NECESSARY
  7. LEVOTHYROXINE SODIUM [Concomitant]
     Indication: HYPOTHYROIDISM
     Dosage: 0.15 MG

REACTIONS (5)
  - CONSTIPATION [None]
  - FLATULENCE [None]
  - OVERDOSE [None]
  - MEDICATION ERROR [None]
  - OFF LABEL USE [None]
